FAERS Safety Report 4924787-4 (Version None)
Quarter: 2006Q1

REPORT INFORMATION
  Report Type: 
  Country: None (occurrence: None)
  Receive Date: 20060222
  Receipt Date: 20060206
  Transmission Date: 20060701
  Serious: Yes (Hospitalization, Disabling)
  Sender: FDA-Public Use
  Company Number: JP-2005-021578

PATIENT
  Age: 54 Year
  Sex: Female
  Weight: 57 kg

DRUGS (7)
  1. BETASERON [Suspect]
     Indication: RELAPSING-REMITTING MULTIPLE SCLEROSIS
     Dosage: 4.8 MIU, EVERY 2D, SUBCUTANEOUS
     Route: 058
     Dates: start: 20021216, end: 20051017
  2. TOLEDOMIN (MILNACIPRAN HYDROCHLORIDE) TABLET [Concomitant]
  3. JUVELA N (TOCOPHERYL NICOTINATE) CAPSULE [Concomitant]
  4. MECOBALAMIN (METHYCOBIDE) (MECOBALAMIN) TABLET [Concomitant]
  5. AMOBAN (ZOPICLONE) TABLET [Concomitant]
  6. CLONAZEPAM [Concomitant]
  7. FAMOTIDINE (GASMET) (FAMOTIDINE) TABLET [Concomitant]

REACTIONS (6)
  - ACARODERMATITIS [None]
  - CEREBRAL HAEMORRHAGE [None]
  - FALL [None]
  - HEPATIC FUNCTION ABNORMAL [None]
  - PSYCHIATRIC SYMPTOM [None]
  - RASH [None]
